FAERS Safety Report 21989759 (Version 1)
Quarter: 2023Q1

REPORT INFORMATION
  Report Type: Spontaneous
  Country: US (occurrence: US)
  Receive Date: 20230214
  Receipt Date: 20230214
  Transmission Date: 20230417
  Serious: Yes (Death, Hospitalization, Other)
  Sender: FDA-Public Use
  Company Number: US-PFIZER INC-PV202300026468

PATIENT
  Age: 57 Year
  Sex: Male

DRUGS (6)
  1. MEROPENEM [Suspect]
     Active Substance: MEROPENEM
     Indication: Pneumocystis jirovecii pneumonia
     Dosage: UNK
  2. FLUCONAZOLE [Suspect]
     Active Substance: FLUCONAZOLE
     Indication: Pneumocystis jirovecii pneumonia
     Dosage: UNK
  3. SULFAMETHOXAZOLE\TRIMETHOPRIM [Suspect]
     Active Substance: SULFAMETHOXAZOLE\TRIMETHOPRIM
     Indication: Pneumocystis jirovecii pneumonia
     Dosage: UNK
     Route: 042
  4. DOXYCYCLINE HYCLATE [Suspect]
     Active Substance: DOXYCYCLINE HYCLATE
     Indication: Pneumocystis jirovecii pneumonia
     Dosage: UNK
  5. VANCOMYCIN HYDROCHLORIDE [Suspect]
     Active Substance: VANCOMYCIN HYDROCHLORIDE
     Indication: Pneumocystis jirovecii pneumonia
     Dosage: UNK
  6. PENTAMIDINE [Suspect]
     Active Substance: PENTAMIDINE
     Indication: Pneumocystis jirovecii pneumonia
     Dosage: UNK

REACTIONS (3)
  - Drug ineffective for unapproved indication [Fatal]
  - Drug resistance [Unknown]
  - Off label use [Unknown]
